FAERS Safety Report 4361413-X (Version None)
Quarter: 2004Q2

REPORT INFORMATION
  Report Type: 
  Country: None (occurrence: None)
  Receive Date: 20040519
  Receipt Date: 20040519
  Transmission Date: 20050107
  Serious: Yes (Hospitalization)
  Sender: FDA-Public Use
  Company Number: None

PATIENT
  Age: 89 Year
  Sex: Female
  Weight: 52.1637 kg

DRUGS (13)
  1. WARFARIN SODIUM [Suspect]
     Indication: ATRIAL FIBRILLATION
     Dosage: 4 MG PO Q DAY
     Route: 048
  2. CELEBREX [Suspect]
  3. VERAPAMIL [Concomitant]
  4. DIGOXIN [Concomitant]
  5. METOPROLOL [Concomitant]
  6. VITAMIN C [Concomitant]
  7. COMBIVENT [Concomitant]
  8. FUROSEMIDE [Concomitant]
  9. POTASSIUM CALTRATE [Concomitant]
  10. VITAMIN B-12 [Concomitant]
  11. VITAMIN B6 [Concomitant]
  12. FOLIC ACID [Concomitant]
  13. CELEBREX [Concomitant]

REACTIONS (4)
  - DUODENAL ULCER [None]
  - GASTRITIS [None]
  - GASTROINTESTINAL HAEMORRHAGE [None]
  - INTERNATIONAL NORMALISED RATIO INCREASED [None]
